FAERS Safety Report 4785233-7 (Version None)
Quarter: 2005Q3

REPORT INFORMATION
  Report Type: 
  Country: None (occurrence: None)
  Receive Date: 20050929
  Receipt Date: 20050916
  Transmission Date: 20060218
  Serious: Yes (Hospitalization)
  Sender: FDA-Public Use
  Company Number: ZICO001294

PATIENT
  Age: 45 Year
  Sex: Female
  Weight: 56 kg

DRUGS (3)
  1. PRIALT [Suspect]
     Indication: PAIN
     Dosage: 0.37 MCG/HR INTRATHECAL
     Route: 037
     Dates: start: 20040504, end: 20050829
  2. IBUPROFEN [Concomitant]
  3. OMEPRAZOLE [Concomitant]

REACTIONS (5)
  - DEVICE MIGRATION [None]
  - MYELITIS [None]
  - PAIN [None]
  - PARAPLEGIA [None]
  - PERIPHERAL MOTOR NEUROPATHY [None]
